FAERS Safety Report 8329559-9 (Version None)
Quarter: 2012Q2

REPORT INFORMATION
  Report Type: 
  Country: None (occurrence: None)
  Receive Date: 20120502
  Receipt Date: 20120425
  Transmission Date: 20120825
  Serious: Yes (Hospitalization)
  Sender: FDA-Public Use
  Company Number: IN-PFIZER INC-2012091019

PATIENT
  Age: 68 Year
  Sex: Male

DRUGS (1)
  1. SUTENT [Suspect]
     Indication: GASTROINTESTINAL STROMAL TUMOUR
     Dosage: 50 MG, 1X/DAY
     Route: 048
     Dates: start: 20120322

REACTIONS (7)
  - SKIN DISCOLOURATION [None]
  - PIGMENTATION DISORDER [None]
  - HAEMOGLOBIN DECREASED [None]
  - PRURITUS [None]
  - VOMITING [None]
  - DIARRHOEA [None]
  - RASH [None]
